FAERS Safety Report 4814936-0 (Version None)
Quarter: 2005Q4

REPORT INFORMATION
  Report Type: 
  Country: None (occurrence: None)
  Receive Date: 20051026
  Receipt Date: 20051017
  Transmission Date: 20060501
  Serious: Yes (Hospitalization, Other)
  Sender: FDA-Public Use
  Company Number: 2005142700

PATIENT
  Age: 64 Year
  Sex: Male

DRUGS (9)
  1. ALDACTONE [Suspect]
     Indication: HYPERTENSION
     Dosage: ORAL
     Route: 048
     Dates: start: 20050701, end: 20050914
  2. ATACAND [Suspect]
     Indication: ILL-DEFINED DISORDER
     Dosage: ORAL
     Route: 048
  3. LISINOPRIL [Suspect]
     Indication: ILL-DEFINED DISORDER
     Dosage: ORAL
     Route: 048
  4. BUMETANIDE [Concomitant]
  5. ALBYL-E (ACETYLSALICYLIC ACID, MAGNESIUM OXIDE) [Concomitant]
  6. LIPITOR [Concomitant]
  7. INSULIN INSULTARD (INSULIN INJECTION, ISOPHANE) [Concomitant]
  8. CARVEDILOL [Concomitant]
  9. ZANIDIP (LERCANIDIPINE HYDROCHLORIDE) [Concomitant]

REACTIONS (1)
  - RENAL FAILURE ACUTE [None]
